FAERS Safety Report 6344051-9 (Version None)
Quarter: 2009Q3

REPORT INFORMATION
  Report Type: 
  Country: None (occurrence: None)
  Receive Date: 20090904
  Receipt Date: 20090904
  Transmission Date: 20100115
  Serious: Yes (Hospitalization)
  Sender: FDA-Public Use
  Company Number: None

PATIENT
  Age: 23 Year
  Sex: Male
  Weight: 86.1834 kg

DRUGS (1)
  1. TOPAMAX [Suspect]
     Indication: CONVULSION
     Dosage: PO
     Route: 048
     Dates: start: 20060212, end: 20060409

REACTIONS (5)
  - ABNORMAL LOSS OF WEIGHT [None]
  - AGGRESSION [None]
  - IRRITABILITY [None]
  - MANIA [None]
  - PARANOIA [None]
